FAERS Safety Report 19624313 (Version 2)
Quarter: 2021Q3

REPORT INFORMATION
  Report Type: Spontaneous
  Country: US (occurrence: US)
  Receive Date: 20210729
  Receipt Date: 20210827
  Transmission Date: 20211014
  Serious: Yes (Hospitalization)
  Sender: FDA-Public Use
  Company Number: US-DECIPHERA PHARMACEUTICALS LLC-2021US000619

PATIENT
  Sex: Female

DRUGS (2)
  1. QINLOCK [Suspect]
     Active Substance: RIPRETINIB
     Indication: GASTROINTESTINAL STROMAL TUMOUR
     Dosage: 100 MILLIGRAM, QD
     Route: 048
     Dates: start: 20210123
  2. QINLOCK [Suspect]
     Active Substance: RIPRETINIB
     Dosage: 100 MILLIGRAM, QD
     Route: 048

REACTIONS (5)
  - Hospitalisation [Unknown]
  - Blood electrolytes decreased [Unknown]
  - Skin disorder [Unknown]
  - Hypertension [Unknown]
  - Alopecia [Unknown]

NARRATIVE: CASE EVENT DATE: 2021
